FAERS Safety Report 10586025 (Version 2)
Quarter: 2014Q4

REPORT INFORMATION
  Report Type: Spontaneous
  Country: US (occurrence: US)
  Receive Date: 20141115
  Receipt Date: 20141210
  Transmission Date: 20150529
  Serious: No
  Sender: FDA-Public Use
  Company Number: US-B.I. PHARMACEUTICALS,INC./RIDGEFIELD-2014-BI-53604BP

PATIENT
  Sex: Female
  Weight: 73.94 kg

DRUGS (6)
  1. DEPAKOTE [Concomitant]
     Active Substance: DIVALPROEX SODIUM
     Indication: DEPRESSION
     Dosage: FORMULATION: ORAL SUSPENSION; STRENGTH: 2 TSP; DAILY DOSE: 2 TSP
     Route: 048
     Dates: start: 201312
  2. PANTOPRAZOLE [Concomitant]
     Active Substance: PANTOPRAZOLE SODIUM
     Indication: GASTROOESOPHAGEAL REFLUX DISEASE
     Dosage: 2 ANZ
     Route: 048
     Dates: start: 2002
  3. SPIRIVA [Suspect]
     Active Substance: TIOTROPIUM BROMIDE MONOHYDRATE
     Indication: ASTHMA
     Dosage: 18 MCG
     Route: 055
     Dates: start: 2004
  4. ABILIFY [Concomitant]
     Active Substance: ARIPIPRAZOLE
     Indication: DEPRESSION
     Dosage: 1 ANZ
     Route: 048
     Dates: start: 2012
  5. NEURONTIN [Concomitant]
     Active Substance: GABAPENTIN
     Indication: DEPRESSION
     Dosage: 1 ANZ
     Route: 048
     Dates: start: 2012
  6. SYNTHROID [Concomitant]
     Active Substance: LEVOTHYROXINE SODIUM
     Indication: HYPOTHYROIDISM
     Dosage: 1 ANZ
     Route: 048
     Dates: start: 2002

REACTIONS (3)
  - Off label use [Unknown]
  - Product quality issue [Unknown]
  - Drug ineffective [Recovered/Resolved]

NARRATIVE: CASE EVENT DATE: 2004
